FAERS Safety Report 8746092 (Version 2)
Quarter: 2012Q4

REPORT INFORMATION
  Report Type: 
  Country: US (occurrence: US)
  Receive Date: 20120827
  Receipt Date: 20121019
  Transmission Date: 20130627
  Serious: Yes (Death, Life-Threatening, Hospitalization, Disabling)
  Sender: FDA-Public Use
  Company Number: US-JNJFOC-20120811046

PATIENT
  Age: 40 None
  Sex: Female
  Weight: 98.43 kg

DRUGS (45)
  1. CILEST [Suspect]
     Indication: CONTRACEPTION
     Route: 048
     Dates: start: 20120621
  2. CINRYZE [Suspect]
     Indication: ABDOMINAL DISTENSION
     Route: 042
     Dates: start: 20101127, end: 20101127
  3. CINRYZE [Suspect]
     Indication: ABDOMINAL DISTENSION
     Route: 042
     Dates: start: 20120628, end: 20120628
  4. CINRYZE [Suspect]
     Indication: ABDOMINAL DISTENSION
     Route: 042
     Dates: start: 20120709, end: 20120709
  5. CINRYZE [Suspect]
     Indication: ABDOMINAL DISTENSION
     Route: 042
     Dates: start: 200910, end: 200910
  6. CINRYZE [Suspect]
     Indication: ABDOMINAL DISTENSION
     Route: 042
     Dates: start: 20120213, end: 20120213
  7. CINRYZE [Suspect]
     Indication: ABDOMINAL DISTENSION
     Route: 042
     Dates: start: 20120206, end: 20120206
  8. CINRYZE [Suspect]
     Indication: ABDOMINAL DISTENSION
     Route: 042
     Dates: start: 20111107, end: 20111107
  9. CINRYZE [Suspect]
     Indication: ABDOMINAL DISTENSION
     Route: 042
     Dates: start: 20110824, end: 20110824
  10. CINRYZE [Suspect]
     Indication: NAUSEA
     Route: 042
     Dates: start: 200910, end: 200910
  11. CINRYZE [Suspect]
     Indication: NAUSEA
     Route: 042
     Dates: start: 20120709, end: 20120709
  12. CINRYZE [Suspect]
     Indication: NAUSEA
     Route: 042
     Dates: start: 20120628, end: 20120628
  13. CINRYZE [Suspect]
     Indication: NAUSEA
     Route: 042
     Dates: start: 20120213, end: 20120213
  14. CINRYZE [Suspect]
     Indication: NAUSEA
     Route: 042
     Dates: start: 20120206, end: 20120206
  15. CINRYZE [Suspect]
     Indication: NAUSEA
     Route: 042
     Dates: start: 20111107, end: 20111107
  16. CINRYZE [Suspect]
     Indication: NAUSEA
     Route: 042
     Dates: start: 20110824, end: 20110824
  17. CINRYZE [Suspect]
     Indication: NAUSEA
     Route: 042
     Dates: start: 20101127, end: 20101127
  18. CINRYZE [Suspect]
     Indication: PAIN
     Route: 042
     Dates: start: 20120206, end: 20120206
  19. CINRYZE [Suspect]
     Indication: PAIN
     Route: 042
     Dates: start: 20120213, end: 20120213
  20. CINRYZE [Suspect]
     Indication: PAIN
     Route: 042
     Dates: start: 20120628, end: 20120628
  21. CINRYZE [Suspect]
     Indication: PAIN
     Route: 042
     Dates: start: 20120709, end: 20120709
  22. CINRYZE [Suspect]
     Indication: PAIN
     Route: 042
     Dates: start: 200910, end: 200910
  23. CINRYZE [Suspect]
     Indication: PAIN
     Route: 042
     Dates: start: 20101127, end: 20101127
  24. CINRYZE [Suspect]
     Indication: PAIN
     Route: 042
     Dates: start: 20110824, end: 20110824
  25. CINRYZE [Suspect]
     Indication: PAIN
     Route: 042
     Dates: start: 20111107, end: 20111107
  26. CINRYZE [Suspect]
     Indication: HEREDITARY ANGIOEDEMA
     Route: 042
     Dates: start: 20120206, end: 20120206
  27. CINRYZE [Suspect]
     Indication: HEREDITARY ANGIOEDEMA
     Route: 042
     Dates: start: 20111107, end: 20111107
  28. CINRYZE [Suspect]
     Indication: HEREDITARY ANGIOEDEMA
     Route: 042
     Dates: start: 20120213, end: 20120213
  29. CINRYZE [Suspect]
     Indication: HEREDITARY ANGIOEDEMA
     Route: 042
     Dates: start: 20110824, end: 20110824
  30. CINRYZE [Suspect]
     Indication: HEREDITARY ANGIOEDEMA
     Route: 042
     Dates: start: 20120709, end: 20120709
  31. CINRYZE [Suspect]
     Indication: HEREDITARY ANGIOEDEMA
     Route: 042
     Dates: start: 20101127, end: 20101127
  32. CINRYZE [Suspect]
     Indication: HEREDITARY ANGIOEDEMA
     Route: 042
     Dates: start: 200910, end: 200910
  33. CINRYZE [Suspect]
     Indication: HEREDITARY ANGIOEDEMA
     Route: 042
     Dates: start: 20120628, end: 20120628
  34. NUVARING [Suspect]
     Indication: CONTRACEPTION
     Route: 065
     Dates: start: 20110827, end: 20110924
  35. EPIPEN [Concomitant]
     Indication: HYPERSENSITIVITY
     Route: 030
  36. KLONOPIN [Concomitant]
     Indication: ANXIETY
     Route: 048
  37. FEXOFENADINE [Concomitant]
     Indication: SEASONAL ALLERGY
     Route: 048
  38. FEXOFENADINE [Concomitant]
     Indication: HYPERSENSITIVITY
     Route: 048
  39. METOPROLOL [Concomitant]
     Indication: HYPERTENSION
     Route: 065
  40. NORTRIPTYLINE [Concomitant]
     Indication: PRODUCT USED FOR UNKNOWN INDICATION
     Route: 065
  41. PRILOSEC [Concomitant]
     Indication: GASTROOESOPHAGEAL REFLUX DISEASE
     Route: 065
  42. CELEXA [Concomitant]
     Indication: DEPRESSION
     Route: 048
  43. MELATONIN [Concomitant]
     Indication: INSOMNIA
     Route: 048
  44. REMERON [Concomitant]
     Indication: PRODUCT USED FOR UNKNOWN INDICATION
     Route: 048
  45. OMEPRAZOLE [Concomitant]
     Indication: PRODUCT USED FOR UNKNOWN INDICATION
     Route: 065

REACTIONS (13)
  - Cerebrovascular accident [Recovered/Resolved with Sequelae]
  - Angioedema [Unknown]
  - Pulmonary embolism [Fatal]
  - Hemiplegia [Recovered/Resolved with Sequelae]
  - Cardiac arrest [Fatal]
  - Abdominal distension [Recovered/Resolved]
  - Bundle branch block right [Unknown]
  - Convulsion [Recovered/Resolved]
  - Syncope [Unknown]
  - Abdominal pain [Recovered/Resolved]
  - Nausea [Recovered/Resolved]
  - Hypotension [Unknown]
  - Oxygen saturation decreased [Unknown]
